FAERS Safety Report 26180004 (Version 1)
Quarter: 2025Q4

REPORT INFORMATION
  Report Type: Spontaneous
  Country: BR (occurrence: BR)
  Receive Date: 20251219
  Receipt Date: 20251219
  Transmission Date: 20260118
  Serious: Yes (Death, Hospitalization, Other)
  Sender: JOHNSON AND JOHNSON
  Company Number: BR-JNJFOC-20251224361

PATIENT
  Age: 50 Year
  Sex: Male

DRUGS (1)
  1. CARVYKTI [Suspect]
     Active Substance: CILTACABTAGENE AUTOLEUCEL
     Indication: Product used for unknown indication

REACTIONS (3)
  - Death [Fatal]
  - Colitis [Unknown]
  - Infection [Unknown]
